FAERS Safety Report 5844542-0 (Version None)
Quarter: 2008Q3

REPORT INFORMATION
  Report Type: 
  Country: None (occurrence: None)
  Receive Date: 20080814
  Receipt Date: 20080811
  Transmission Date: 20090109
  Serious: Yes (Death)
  Sender: FDA-Public Use
  Company Number: PHHO2002FR07708

PATIENT
  Sex: Female
  Weight: 38 kg

DRUGS (3)
  1. EXELON [Suspect]
     Indication: DEMENTIA ALZHEIMER'S TYPE
     Route: 048
     Dates: start: 20011217, end: 20020923
  2. AMLOR [Suspect]
     Indication: HYPERTENSION
  3. ASPIRIN [Suspect]
     Indication: PROPHYLAXIS

REACTIONS (3)
  - APHASIA [None]
  - CEREBROVASCULAR ACCIDENT [None]
  - HEMIPLEGIA [None]
